FAERS Safety Report 9989479 (Version 2)
Quarter: 2014Q1

REPORT INFORMATION
  Report Type: Report from Study
  Country: US (occurrence: US)
  Receive Date: 20140310
  Receipt Date: 20140310
  Transmission Date: 20141002
  Serious: No
  Sender: FDA-Public Use
  Company Number: US-ABBVIE-13P-163-1092136-00

PATIENT
  Age: 68 Year
  Sex: Male
  Weight: 79.45 kg

DRUGS (21)
  1. HUMIRA [Suspect]
     Indication: CROHN^S DISEASE
     Dates: start: 20130326
  2. PENTASA [Concomitant]
     Indication: CROHN^S DISEASE
  3. PENTASA [Concomitant]
     Dosage: DECREASED
  4. HYTRIN [Concomitant]
     Indication: HYPERTENSION
     Dosage: AT PM
  5. LISINOPRIL [Concomitant]
     Indication: HYPERTENSION
     Dosage: AT AM
  6. OMEPRAZOLE [Concomitant]
     Indication: HIATUS HERNIA
     Dosage: 1-2 PER DAY
  7. REQUIP [Concomitant]
     Indication: RESTLESS LEGS SYNDROME
     Dosage: PM
  8. CLONAZEPAM [Concomitant]
     Indication: RESTLESS LEGS SYNDROME
     Dosage: PM
  9. LEVISIN [Concomitant]
     Indication: IRRITABLE BOWEL SYNDROME
  10. SINGULAR [Concomitant]
     Indication: HYPERSENSITIVITY
  11. SERTRALINE [Concomitant]
     Indication: DEPRESSION
  12. K-DUR [Concomitant]
     Indication: MINERAL SUPPLEMENTATION
  13. ADVAIR [Concomitant]
     Indication: HYPERSENSITIVITY
  14. COMBIVENT [Concomitant]
     Indication: HYPERSENSITIVITY
  15. VERMYST FLUTICASONE [Concomitant]
     Indication: PRODUCT USED FOR UNKNOWN INDICATION
     Dosage: 2 SPRAYS EACH NOSTRIL
  16. MAGNESIUM OXIDE [Concomitant]
     Indication: BLOOD TEST ABNORMAL
  17. FOLIC ACID [Concomitant]
     Indication: BLOOD TEST ABNORMAL
  18. FOLIC ACID [Concomitant]
  19. MURILAX [Concomitant]
     Indication: GASTROINTESTINAL DISORDER
     Dosage: DAILY
  20. COMBIVENT/RESPIMAT INHALER [Concomitant]
     Dosage: 20-100 MC
  21. VITAMIN D [Concomitant]
     Dates: start: 20130711

REACTIONS (14)
  - Constipation [Not Recovered/Not Resolved]
  - Injection site erythema [Recovered/Resolved]
  - Injection site haemorrhage [Not Recovered/Not Resolved]
  - Diarrhoea [Not Recovered/Not Resolved]
  - Haemorrhoids [Not Recovered/Not Resolved]
  - Proctalgia [Not Recovered/Not Resolved]
  - Painful defaecation [Not Recovered/Not Resolved]
  - Arthralgia [Not Recovered/Not Resolved]
  - Weight increased [Not Recovered/Not Resolved]
  - Injection site bruising [Not Recovered/Not Resolved]
  - Drug ineffective [Not Recovered/Not Resolved]
  - Depression [Not Recovered/Not Resolved]
  - Asthenia [Not Recovered/Not Resolved]
  - Disturbance in attention [Not Recovered/Not Resolved]
